FAERS Safety Report 6600745-9 (Version None)
Quarter: 2010Q1

REPORT INFORMATION
  Report Type: 
  Country: None (occurrence: None)
  Receive Date: 20100223
  Receipt Date: 20100223
  Transmission Date: 20100710
  Serious: No
  Sender: FDA-Public Use
  Company Number: None

PATIENT
  Sex: Female
  Weight: 59.4212 kg

DRUGS (1)
  1. TRILIPIX [Suspect]
     Indication: HYPERTRIGLYCERIDAEMIA
     Dosage: 134 MG DAILY PO
     Route: 048
     Dates: start: 20100120, end: 20100216

REACTIONS (1)
  - HEPATIC ENZYME INCREASED [None]
